FAERS Safety Report 20520474 (Version 1)
Quarter: 2022Q1

REPORT INFORMATION
  Report Type: Spontaneous
  Country: US (occurrence: None)
  Receive Date: 20220225
  Receipt Date: 20220225
  Transmission Date: 20220424
  Serious: No
  Sender: FDA-Public Use
  Company Number: None

PATIENT
  Age: 67 Year
  Sex: Male

DRUGS (1)
  1. CARBAMAZEPINE [Suspect]
     Active Substance: CARBAMAZEPINE

REACTIONS (3)
  - Eyelid irritation [None]
  - Prostatomegaly [None]
  - Bedridden [None]

NARRATIVE: CASE EVENT DATE: 20220225
